FAERS Safety Report 7086322-7 (Version None)
Quarter: 2010Q4

REPORT INFORMATION
  Report Type: 
  Country: None (occurrence: None)
  Receive Date: 20101105
  Receipt Date: 20101010
  Transmission Date: 20110411
  Serious: Yes (Other)
  Sender: FDA-Public Use
  Company Number: AE-B.I. PHARMACEUTICALS,INC./RIDGEFIELD-2010-CS-00860AE

PATIENT
  Age: 50 Year
  Sex: Male

DRUGS (1)
  1. DABIGATRAN ETEXILATE [Suspect]
     Dosage: 75MG QD
     Route: 048
     Dates: start: 20100801, end: 20101001

REACTIONS (2)
  - EMBOLISM VENOUS [None]
  - PULMONARY EMBOLISM [None]
